FAERS Safety Report 5850685-8 (Version None)
Quarter: 2008Q3

REPORT INFORMATION
  Report Type: 
  Country: None (occurrence: None)
  Receive Date: 20080820
  Receipt Date: 20080813
  Transmission Date: 20090109
  Serious: Yes (Hospitalization)
  Sender: FDA-Public Use
  Company Number: ES-BRISTOL-MYERS SQUIBB COMPANY-14301907

PATIENT
  Age: 65 Year
  Sex: Male

DRUGS (3)
  1. CETUXIMAB [Suspect]
     Indication: COLON CANCER METASTATIC
     Route: 042
     Dates: start: 20080220
  2. CP-751,871 [Suspect]
     Indication: COLON CANCER METASTATIC
     Dosage: THERAPY STARTED ON 14JAN08, TTD OF 1438 MG ONCE DAILY (20 MG/KG 1 IN 21 D), CUMULATIVE DOSE 2876 MG
     Route: 042
     Dates: start: 20080115, end: 20080115
  3. IRINOTECAN HCL [Suspect]
     Indication: COLON CANCER METASTATIC
     Route: 042
     Dates: start: 20080220

REACTIONS (3)
  - DIARRHOEA [None]
  - NEUTROPENIA [None]
  - RENAL FAILURE [None]
